FAERS Safety Report 4265972-7 (Version None)
Quarter: 2004Q1

REPORT INFORMATION
  Report Type: 
  Country: None (occurrence: None)
  Receive Date: 20040106
  Receipt Date: 20031223
  Transmission Date: 20041129
  Serious: Yes (Other)
  Sender: FDA-Public Use
  Company Number: 2003121358

PATIENT
  Age: 49 Year
  Sex: Male
  Weight: 86 kg

DRUGS (4)
  1. LUSTRAL (SERTRALINE) [Suspect]
     Indication: DEPRESSION
     Dosage: 50 MG (DAILY), ORAL
     Route: 048
     Dates: start: 20031020, end: 20031113
  2. CIMETIDINE [Concomitant]
  3. AMLODIPINE BESYLATE [Concomitant]
  4. CARBAMAZEPINE [Concomitant]

REACTIONS (7)
  - ASTHMA [None]
  - CIRCUMORAL OEDEMA [None]
  - DRY MOUTH [None]
  - DYSPHAGIA [None]
  - OEDEMA MOUTH [None]
  - SWELLING FACE [None]
  - TONGUE OEDEMA [None]
